FAERS Safety Report 8602415-4 (Version None)
Quarter: 2012Q3

REPORT INFORMATION
  Report Type: 
  Country: None (occurrence: None)
  Receive Date: 20120817
  Receipt Date: 20120809
  Transmission Date: 20120928
  Serious: Yes (Hospitalization)
  Sender: FDA-Public Use
  Company Number: DE-PFIZER INC-2012195377

PATIENT
  Age: 66 Year
  Sex: Female
  Weight: 71 kg

DRUGS (10)
  1. METOPROLOL [Concomitant]
     Indication: HYPERTENSION
     Dosage: UNK
  2. RAMIPRIL [Concomitant]
     Indication: HYPERTENSION
     Dosage: UNK
  3. AXITINIB [Suspect]
     Indication: HEPATIC NEOPLASM MALIGNANT
     Dosage: 5 MG, 2X/DAY
     Route: 048
     Dates: start: 20120419
  4. SIMVASTATIN [Concomitant]
     Indication: HYPERCHOLESTEROLAEMIA
     Dosage: UNK
     Dates: start: 20090101
  5. OPIPRAMOL [Concomitant]
     Indication: DEPRESSION
     Dosage: UNK
  6. OMEPRAZOLE [Concomitant]
     Indication: GASTRITIS
     Dosage: UNK
  7. INNOHEP [Concomitant]
     Indication: PROPHYLAXIS
     Dosage: UNK
     Dates: start: 20110401
  8. VAGANTIN [Concomitant]
     Indication: NIGHT SWEATS
     Dosage: UNK
  9. LORAZEPAM [Concomitant]
     Indication: DEPRESSION
     Dosage: UNK
  10. PARACODIN BITARTRATE TAB [Concomitant]
     Indication: COUGH

REACTIONS (1)
  - INFLAMMATION [None]
